FAERS Safety Report 21455608 (Version 1)
Quarter: 2022Q4

REPORT INFORMATION
  Report Type: Report from Study
  Country: US (occurrence: US)
  Receive Date: 20221014
  Receipt Date: 20221014
  Transmission Date: 20230112
  Serious: No
  Sender: FDA-Public Use
  Company Number: US-ABBVIE-4141281

PATIENT
  Sex: Male

DRUGS (1)
  1. SKYRIZI [Suspect]
     Active Substance: RISANKIZUMAB-RZAA
     Indication: Product used for unknown indication
     Dosage: 75 MG/0.83ML?STRENGTH 75 MILLIGRAM
     Route: 058
     Dates: end: 20220519

REACTIONS (2)
  - Condition aggravated [Unknown]
  - Skin disorder [Unknown]
